FAERS Safety Report 18926471 (Version 1)
Quarter: 2021Q1

REPORT INFORMATION
  Report Type: Spontaneous
  Country: US (occurrence: US)
  Receive Date: 20210223
  Receipt Date: 20210223
  Transmission Date: 20210420
  Serious: No
  Sender: FDA-Public Use
  Company Number: US-APOTEX-2020AP017490

PATIENT
  Age: 64 Year
  Sex: Female

DRUGS (2)
  1. TIZANIDINE TABLETS [Suspect]
     Active Substance: TIZANIDINE HYDROCHLORIDE
     Indication: MIGRAINE
     Dosage: 2 DOSAGE FORM, QD
     Route: 048
  2. TIZANIDINE TABLETS [Suspect]
     Active Substance: TIZANIDINE HYDROCHLORIDE
     Indication: MUSCLE RELAXANT THERAPY

REACTIONS (2)
  - Product substitution issue [Unknown]
  - Drug ineffective [Unknown]
